FAERS Safety Report 11217749 (Version 3)
Quarter: 2015Q3

REPORT INFORMATION
  Report Type: Report from Study
  Country: US (occurrence: US)
  Receive Date: 20150625
  Receipt Date: 20150820
  Transmission Date: 20151125
  Serious: Yes (Death, Other)
  Sender: FDA-Public Use
  Company Number: US-GILEAD-2015-0160135

PATIENT
  Age: 54 Year
  Sex: Female

DRUGS (4)
  1. REVATIO [Concomitant]
     Active Substance: SILDENAFIL CITRATE
  2. AMBRISENTAN [Suspect]
     Active Substance: AMBRISENTAN
     Indication: PULMONARY HYPERTENSION
  3. REMODULIN [Concomitant]
     Active Substance: TREPROSTINIL
  4. AMBRISENTAN [Suspect]
     Active Substance: AMBRISENTAN
     Indication: SYSTEMIC SCLEROSIS
     Dosage: 5 MG, QD
     Route: 065
     Dates: start: 20120816, end: 20150617

REACTIONS (1)
  - Septic shock [Fatal]
